FAERS Safety Report 5222836-X (Version None)
Quarter: 2007Q1

REPORT INFORMATION
  Report Type: 
  Country: None (occurrence: None)
  Receive Date: 20070129
  Receipt Date: 20070123
  Transmission Date: 20070707
  Serious: Yes (Hospitalization)
  Sender: FDA-Public Use
  Company Number: JP-JPN-A200700176

PATIENT
  Age: 68 Year
  Sex: Female
  Weight: 48 kg

DRUGS (6)
  1. VALTREX [Suspect]
     Indication: HERPES ZOSTER
     Dosage: 1000MG THREE TIMES PER DAY
     Route: 048
     Dates: start: 20070117, end: 20070118
  2. TENORMIN [Concomitant]
     Route: 048
  3. CONIEL [Concomitant]
     Route: 048
  4. RENAGEL [Concomitant]
     Route: 048
  5. ZANTAC [Concomitant]
     Route: 065
  6. PLETAL [Concomitant]
     Route: 048

REACTIONS (1)
  - DELIRIUM [None]
